FAERS Safety Report 16367372 (Version 2)
Quarter: 2019Q3

REPORT INFORMATION
  Report Type: Spontaneous
  Country: US (occurrence: US)
  Receive Date: 20190529
  Receipt Date: 20190701
  Transmission Date: 20191004
  Serious: No
  Sender: FDA-Public Use
  Company Number: US-PFIZER INC-2019226300

PATIENT
  Age: 40 Year
  Sex: Female

DRUGS (1)
  1. XELJANZ XR [Suspect]
     Active Substance: TOFACITINIB CITRATE
     Indication: RHEUMATOID ARTHRITIS
     Dosage: 11 MG, 1X/DAY

REACTIONS (7)
  - Cough [Unknown]
  - Dysphonia [Unknown]
  - Dry throat [Unknown]
  - Sputum discoloured [Unknown]
  - Rhinorrhoea [Not Recovered/Not Resolved]
  - Nasopharyngitis [Unknown]
  - Burning sensation [Unknown]
